FAERS Safety Report 10160043 (Version 1)
Quarter: 2014Q2

REPORT INFORMATION
  Report Type: Spontaneous
  Country: US (occurrence: US)
  Receive Date: 20140508
  Receipt Date: 20140508
  Transmission Date: 20141212
  Serious: No
  Sender: FDA-Public Use
  Company Number: US-GLAXOSMITHKLINE-A1058273A

PATIENT
  Age: 37 Year
  Sex: Female

DRUGS (2)
  1. TYKERB [Suspect]
     Indication: BREAST CANCER
     Dosage: 1250MG PER DAY
     Route: 048
     Dates: start: 20131230
  2. XELODA [Concomitant]

REACTIONS (5)
  - Back pain [Unknown]
  - Headache [Unknown]
  - Dyspnoea [Unknown]
  - Paraesthesia [Unknown]
  - Abdominal pain upper [Unknown]
